FAERS Safety Report 7108155-5 (Version None)
Quarter: 2010Q4

REPORT INFORMATION
  Report Type: 
  Country: None (occurrence: None)
  Receive Date: 20101115
  Receipt Date: 20101115
  Transmission Date: 20110411
  Serious: Yes (Other)
  Sender: FDA-Public Use
  Company Number: None

PATIENT

DRUGS (1)
  1. TRILYTE [Suspect]
     Indication: COLONOSCOPY
     Dosage: COULD ONLY DRINK HALF OF JUG
     Route: 048

REACTIONS (4)
  - HICCUPS [None]
  - NAUSEA [None]
  - RETCHING [None]
  - VOMITING [None]
